FAERS Safety Report 25652985 (Version 1)
Quarter: 2025Q3

REPORT INFORMATION
  Report Type: Report from Study
  Country: US (occurrence: US)
  Receive Date: 20250807
  Receipt Date: 20250807
  Transmission Date: 20251021
  Serious: Yes (Other)
  Sender: ABBVIE
  Company Number: US-ABBVIE-6367548

PATIENT
  Age: 63 Year
  Sex: Female

DRUGS (1)
  1. SKYRIZI [Suspect]
     Active Substance: RISANKIZUMAB-RZAA
     Indication: Psoriasis
     Route: 058
     Dates: start: 20250429

REACTIONS (11)
  - Rotator cuff repair [Not Recovered/Not Resolved]
  - Skin exfoliation [Not Recovered/Not Resolved]
  - Constipation [Unknown]
  - Weight decreased [Recovering/Resolving]
  - Faeces hard [Unknown]
  - Diverticulitis [Unknown]
  - Skin plaque [Not Recovered/Not Resolved]
  - Surgical failure [Unknown]
  - Device adhesion issue [Unknown]
  - Cast application [Unknown]
  - Musculoskeletal disorder [Unknown]

NARRATIVE: CASE EVENT DATE: 20250101
